FAERS Safety Report 25037045 (Version 3)
Quarter: 2025Q1

REPORT INFORMATION
  Report Type: Spontaneous
  Country: US (occurrence: US)
  Receive Date: 20250304
  Receipt Date: 20250324
  Transmission Date: 20250408
  Serious: Yes (Other)
  Sender: MYLAN
  Company Number: US-MYLANLABS-2025M1016793

PATIENT

DRUGS (4)
  1. LEVOTHYROXINE SODIUM [Suspect]
     Active Substance: LEVOTHYROXINE SODIUM
     Indication: Product used for unknown indication
     Dosage: 137 MICROGRAM, AM (EACH MORNING AT 4 AM)
  2. LEVOTHYROXINE SODIUM [Suspect]
     Active Substance: LEVOTHYROXINE SODIUM
     Dosage: 137 MICROGRAM, AM (EACH MORNING AT 4 AM)
     Dates: start: 202405, end: 20250113
  3. LEVOTHYROXINE SODIUM [Suspect]
     Active Substance: LEVOTHYROXINE SODIUM
     Dosage: 137 MICROGRAM, AM (EACH MORNING AT 4 AM)
     Dates: start: 202405, end: 20250113
  4. LEVOTHYROXINE SODIUM [Suspect]
     Active Substance: LEVOTHYROXINE SODIUM
     Dosage: 137 MICROGRAM, AM (EACH MORNING AT 4 AM)
     Dates: start: 202405, end: 20250113

REACTIONS (19)
  - Hypothyroidism [Unknown]
  - Skin burning sensation [Recovering/Resolving]
  - Oral discomfort [Recovering/Resolving]
  - Paraesthesia oral [Recovering/Resolving]
  - Anxiety [Recovering/Resolving]
  - Rash [Recovering/Resolving]
  - Pruritus [Recovering/Resolving]
  - Therapy non-responder [Unknown]
  - Recalled product administered [Unknown]
  - Recalled product [Unknown]
  - Burning sensation [Recovering/Resolving]
  - Rash pruritic [Recovering/Resolving]
  - Palpitations [Recovering/Resolving]
  - Mood altered [Recovered/Resolved]
  - Aggression [Recovered/Resolved]
  - Cheilitis [Recovered/Resolved]
  - Scar [Recovered/Resolved]
  - Gastrointestinal pain [Recovered/Resolved]
  - Flushing [Recovered/Resolved]
